FAERS Safety Report 19839414 (Version 6)
Quarter: 2022Q2

REPORT INFORMATION
  Report Type: Spontaneous
  Country: BR (occurrence: BR)
  Receive Date: 20210916
  Receipt Date: 20220507
  Transmission Date: 20220720
  Serious: Yes (Life-Threatening, Other)
  Sender: FDA-Public Use
  Company Number: NVSC2021BR109272

PATIENT
  Age: 63 Year
  Sex: Female
  Weight: 71.5 kg

DRUGS (14)
  1. KISQALI [Suspect]
     Active Substance: RIBOCICLIB
     Indication: Breast cancer metastatic
     Dosage: 400 MG, QD (2 DF, QD)
     Route: 065
     Dates: start: 20210309
  2. KISQALI [Suspect]
     Active Substance: RIBOCICLIB
     Dosage: 600 MG, QD (3 DF, PER DAY FRO 21 DAYS FOLLOWED BY 7 DAYS OF BREAK)
     Route: 048
     Dates: start: 20210310
  3. KISQALI [Suspect]
     Active Substance: RIBOCICLIB
     Dosage: 200 MG
     Route: 065
  4. KISQALI [Suspect]
     Active Substance: RIBOCICLIB
     Dosage: UNK
     Route: 065
     Dates: start: 20210901
  5. KISQALI [Suspect]
     Active Substance: RIBOCICLIB
     Dosage: UNK
     Route: 065
     Dates: start: 20211103
  6. KISQALI [Suspect]
     Active Substance: RIBOCICLIB
     Dosage: 400 MG, QD (FOR 21 DAYS,WITH A PAUSE 7 DAYS)
     Route: 048
     Dates: start: 20211101, end: 20211121
  7. KISQALI [Suspect]
     Active Substance: RIBOCICLIB
     Dosage: 200 MG
     Route: 065
     Dates: start: 20210309
  8. KISQALI [Suspect]
     Active Substance: RIBOCICLIB
     Dosage: 200 MG (400MG\DAY OER 21 DAYS, WITH A BREAK OF 7 DAYS)
     Route: 048
     Dates: start: 20210309, end: 20210821
  9. KISQALI [Suspect]
     Active Substance: RIBOCICLIB
     Dosage: 200 MG (400MG\DAY OER 21 DAYS, WITH A BREAK OF 7 DAYS)
     Route: 048
     Dates: start: 20210821, end: 20210831
  10. KISQALI [Suspect]
     Active Substance: RIBOCICLIB
     Dosage: 200 MG (400MG\DAY OER 21 DAYS, WITH A BREAK OF 7 DAYS)
     Route: 048
     Dates: start: 20211101, end: 20211121
  11. LETROZOLE [Suspect]
     Active Substance: LETROZOLE
     Indication: Breast cancer
     Dosage: UNK
     Route: 065
     Dates: start: 20210309
  12. FEMARA [Concomitant]
     Active Substance: LETROZOLE
     Indication: Breast cancer metastatic
     Dosage: UNK
     Route: 065
     Dates: start: 20210309
  13. FEMARA [Concomitant]
     Active Substance: LETROZOLE
     Dosage: 1 DF, QD
     Route: 048
     Dates: start: 20210310
  14. FEMARA [Concomitant]
     Active Substance: LETROZOLE
     Dosage: 1 DF, QD
     Route: 048
     Dates: start: 202103

REACTIONS (11)
  - Neutropenia [Recovered/Resolved]
  - Thrombocytopenia [Recovered/Resolved]
  - Thrombocytopenia [Not Recovered/Not Resolved]
  - Neutropenia [Recovered/Resolved]
  - Neutropenia [Recovered/Resolved]
  - Pneumonitis [Unknown]
  - Dysphagia [Recovered/Resolved]
  - Stomatitis [Recovered/Resolved]
  - Aphthous ulcer [Unknown]
  - Oropharyngeal pain [Recovered/Resolved]
  - Cough [Recovered/Resolved]

NARRATIVE: CASE EVENT DATE: 20210323
